FAERS Safety Report 24058716 (Version 1)
Quarter: 2024Q3

REPORT INFORMATION
  Report Type: Spontaneous
  Country: FR (occurrence: FR)
  Receive Date: 20240708
  Receipt Date: 20240708
  Transmission Date: 20241016
  Serious: Yes (Other)
  Sender: CELLTRION
  Company Number: FR-CELLTRION INC.-2024FR016001

PATIENT

DRUGS (5)
  1. TRASTUZUMAB [Suspect]
     Active Substance: TRASTUZUMAB
     Indication: Breast cancer metastatic
     Dosage: 252 MG, EVERY 3 WEEK
     Route: 042
     Dates: start: 20220602, end: 20220902
  2. ERIBULIN [Concomitant]
     Active Substance: ERIBULIN
     Indication: Breast cancer metastatic
     Dosage: 2.6 MG, 1 CYCLE
     Route: 048
     Dates: start: 20220602, end: 20220812
  3. SKENAN [Concomitant]
     Active Substance: MORPHINE SULFATE
     Dosage: 20 MG, EVERY DAY
     Route: 048
     Dates: start: 2010
  4. MORPHINE SULFATE [Concomitant]
     Active Substance: MORPHINE SULFATE
     Dosage: 1 DF
     Route: 048
     Dates: start: 2010
  5. ELIQUIS [Concomitant]
     Active Substance: APIXABAN
     Indication: Thrombosis prophylaxis
     Dosage: UNK
     Route: 048
     Dates: start: 201912

REACTIONS (3)
  - Keratitis [Not Recovered/Not Resolved]
  - Left ventricular failure [Not Recovered/Not Resolved]
  - Underdose [Unknown]

NARRATIVE: CASE EVENT DATE: 20220823
